FAERS Safety Report 5988676-9 (Version None)
Quarter: 2008Q4

REPORT INFORMATION
  Report Type: 
  Country: None (occurrence: None)
  Receive Date: 20081210
  Receipt Date: 20081201
  Transmission Date: 20090506
  Serious: Yes (Other)
  Sender: FDA-Public Use
  Company Number: PHHY2008BR29281

PATIENT
  Age: 70 Year
  Sex: Female
  Weight: 84.4 kg

DRUGS (3)
  1. DIOVAN HCT [Suspect]
     Indication: HYPERTENSION
     Dosage: 80/12.5 MG, 1 TAB/MORNING
     Route: 048
     Dates: start: 20081117, end: 20081118
  2. DIOVAN HCT [Suspect]
     Dosage: 80/12.5 MG
     Route: 048
     Dates: start: 20081121
  3. ATENOLOL [Suspect]
     Indication: HYPERTENSION
     Dosage: 50 MG, 1 TAB/NIGHT
     Route: 048
     Dates: start: 20081117

REACTIONS (7)
  - BLOOD PRESSURE INCREASED [None]
  - ERYTHEMA [None]
  - FEELING ABNORMAL [None]
  - HAEMATOMA [None]
  - HYPERSENSITIVITY [None]
  - PRURITUS [None]
  - SKIN DISCOLOURATION [None]
